FAERS Safety Report 7094081-7 (Version None)
Quarter: 2010Q4

REPORT INFORMATION
  Report Type: 
  Country: None (occurrence: None)
  Receive Date: 20101110
  Receipt Date: 20101102
  Transmission Date: 20110411
  Serious: Yes (Hospitalization, Congenital Anomaly, Other)
  Sender: FDA-Public Use
  Company Number: US-PFIZER INC-2010092586

PATIENT
  Sex: Female
  Weight: 2.8 kg

DRUGS (2)
  1. ZOLOFT [Suspect]
     Indication: ANXIETY
     Dosage: 50MG DAILY
     Route: 064
  2. ZOLOFT [Suspect]
     Dosage: 100MG DAILY
     Route: 064

REACTIONS (13)
  - AORTIC DISORDER [None]
  - CARDIAC DISORDER [None]
  - CARDIOMEGALY [None]
  - DRUG EXPOSURE DURING PREGNANCY [None]
  - FALLOT'S TETRALOGY [None]
  - HYDRONEPHROSIS [None]
  - PELVI-URETERIC OBSTRUCTION [None]
  - PULMONARY ARTERY STENOSIS [None]
  - PULMONARY VASCULAR DISORDER [None]
  - RENAL APLASIA [None]
  - TRIGGER FINGER [None]
  - URINARY TRACT INFECTION [None]
  - VENTRICULAR SEPTAL DEFECT [None]
